FAERS Safety Report 12332278 (Version 1)
Quarter: 2016Q2

REPORT INFORMATION
  Report Type: Spontaneous
  Country: US (occurrence: US)
  Receive Date: 20160504
  Receipt Date: 20160504
  Transmission Date: 20160815
  Serious: No
  Sender: FDA-Public Use
  Company Number: US-ROCHE-1670413

PATIENT
  Sex: Female
  Weight: 77.18 kg

DRUGS (1)
  1. ESBRIET [Suspect]
     Active Substance: PIRFENIDONE
     Indication: IDIOPATHIC PULMONARY FIBROSIS
     Route: 048
     Dates: start: 20150505

REACTIONS (6)
  - Decreased appetite [Unknown]
  - Muscular weakness [Unknown]
  - Body temperature increased [Unknown]
  - Gastroenteritis viral [Unknown]
  - Gastrooesophageal reflux disease [Unknown]
  - Fatigue [Unknown]
